FAERS Safety Report 6020281-0 (Version None)
Quarter: 2008Q4

REPORT INFORMATION
  Report Type: 
  Country: None (occurrence: None)
  Receive Date: 20081226
  Receipt Date: 20081217
  Transmission Date: 20090506
  Serious: Yes (Other)
  Sender: FDA-Public Use
  Company Number: US-BAYER-200814937BCC

PATIENT
  Age: 52 Year
  Sex: Female
  Weight: 82 kg

DRUGS (2)
  1. RID LICE KILLING SHAMPOO + CONDITIONER [Suspect]
     Indication: PROPHYLAXIS
     Route: 061
     Dates: start: 20081211
  2. RID MOUSSE [Suspect]
     Indication: PROPHYLAXIS
     Route: 061
     Dates: start: 20081211

REACTIONS (6)
  - BLOOD PRESSURE DECREASED [None]
  - BLOOD PRESSURE SYSTOLIC DECREASED [None]
  - FEELING ABNORMAL [None]
  - HEART RATE DECREASED [None]
  - NERVOUSNESS [None]
  - PRESYNCOPE [None]
